FAERS Safety Report 16701482 (Version 1)
Quarter: 2019Q3

REPORT INFORMATION
  Report Type: Spontaneous
  Country: US (occurrence: US)
  Receive Date: 20190814
  Receipt Date: 20190814
  Transmission Date: 20191004
  Serious: Yes (Other)
  Sender: FDA-Public Use
  Company Number: US-PFIZER INC-2019343840

PATIENT
  Age: 62 Year
  Sex: Male
  Weight: 94.35 kg

DRUGS (2)
  1. ATORVASTATIN CALCIUM. [Suspect]
     Active Substance: ATORVASTATIN CALCIUM
     Indication: BLOOD CHOLESTEROL ABNORMAL
     Dosage: 20 MG, 1X/DAY (AT BEDTIME)
     Route: 048
  2. LIPITOR [Suspect]
     Active Substance: ATORVASTATIN CALCIUM
     Dosage: UNK

REACTIONS (9)
  - Intervertebral disc displacement [Unknown]
  - Gait disturbance [Recovering/Resolving]
  - Intervertebral disc disorder [Unknown]
  - Hypoaesthesia [Unknown]
  - Toothache [Recovered/Resolved]
  - Haemorrhage [Recovered/Resolved]
  - Calcium deficiency [Recovering/Resolving]
  - Pain [Unknown]
  - Dental caries [Recovering/Resolving]
